FAERS Safety Report 20205165 (Version 1)
Quarter: 2021Q4

REPORT INFORMATION
  Report Type: Spontaneous
  Country: US (occurrence: None)
  Receive Date: 20211220
  Receipt Date: 20211220
  Transmission Date: 20220303
  Serious: No
  Sender: FDA-Public Use
  Company Number: US-MDD US Operations-2021SUP00016

PATIENT
  Age: 35 Year
  Sex: Female
  Weight: 58.957 kg

DRUGS (6)
  1. OXTELLAR XR [Suspect]
     Active Substance: OXCARBAZEPINE
     Indication: Epilepsy
     Dosage: 600 MG, 1X/DAY IN THE MORNING
     Route: 048
  2. OXTELLAR XR [Suspect]
     Active Substance: OXCARBAZEPINE
     Indication: Seizure
     Dosage: 900 MG, 1X/DAY AT NIGHT
     Route: 048
  3. OXTELLAR XR [Suspect]
     Active Substance: OXCARBAZEPINE
     Dosage: 600 MG, 1X/DAY IN THE MORNING
     Route: 048
  4. OXTELLAR XR [Suspect]
     Active Substance: OXCARBAZEPINE
     Dosage: 900 MG, 1X/DAY AT NIGHT
     Route: 048
  5. UNSPECIFIED OTC ALLERGY MEDICATION [Concomitant]
     Dosage: UNK, AS NEEDED
  6. IBUPROFEN [Concomitant]
     Active Substance: IBUPROFEN
     Dosage: UNK, AS NEEDED

REACTIONS (7)
  - Gait inability [Not Recovered/Not Resolved]
  - Intentional self-injury [Recovered/Resolved]
  - Abnormal behaviour [Recovered/Resolved]
  - Cystitis [Recovered/Resolved]
  - Tremor [None]
  - Hypoaesthesia [None]
  - Unevaluable event [None]

NARRATIVE: CASE EVENT DATE: 20210220
